FAERS Safety Report 4456340-3 (Version None)
Quarter: 2004Q3

REPORT INFORMATION
  Report Type: 
  Country: None (occurrence: None)
  Receive Date: 20040917
  Receipt Date: 20040909
  Transmission Date: 20050211
  Serious: Yes (Other)
  Sender: FDA-Public Use
  Company Number: 2004232967US

PATIENT
  Sex: Female

DRUGS (4)
  1. PROVERA [Suspect]
     Indication: HORMONE REPLACEMENT THERAPY
     Dates: start: 19820101, end: 19970916
  2. PREMARIN [Suspect]
     Indication: HORMONE REPLACEMENT THERAPY
     Dates: start: 19820101, end: 19970718
  3. PREMPRO [Suspect]
     Indication: HORMONE REPLACEMENT THERAPY
     Dates: start: 19960826, end: 19960101
  4. ORTHO-PREFEST (17 BETA-ESTRADIOL) [Suspect]
     Indication: HORMONE REPLACEMENT THERAPY
     Dates: start: 20010126, end: 20020429

REACTIONS (2)
  - BREAST CANCER FEMALE [None]
  - MYOCARDIAL INFARCTION [None]
